FAERS Safety Report 6161277-8 (Version None)
Quarter: 2009Q2

REPORT INFORMATION
  Report Type: 
  Country: None (occurrence: None)
  Receive Date: 20090421
  Receipt Date: 20090413
  Transmission Date: 20091009
  Serious: Yes (Other)
  Sender: FDA-Public Use
  Company Number: US-ASTRAZENECA-2009UW07742

PATIENT
  Age: 70 Year
  Sex: Female
  Weight: 68.5 kg

DRUGS (3)
  1. ARIMIDEX [Suspect]
     Route: 048
     Dates: start: 20090101, end: 20090101
  2. ARIMIDEX [Suspect]
     Route: 048
     Dates: start: 20090101
  3. KLONOPIN [Concomitant]
     Indication: SLEEP DISORDER

REACTIONS (5)
  - DYSPHONIA [None]
  - HYPOAESTHESIA [None]
  - INSOMNIA [None]
  - PNEUMONIA [None]
  - SKIN LESION [None]
